FAERS Safety Report 17424459 (Version 1)
Quarter: 2020Q1

REPORT INFORMATION
  Report Type: Spontaneous
  Country: JP (occurrence: JP)
  Receive Date: 20200217
  Receipt Date: 20200217
  Transmission Date: 20200409
  Serious: Yes (Death, Hospitalization)
  Sender: FDA-Public Use
  Company Number: JP-TEVA-2020-JP-1186185

PATIENT
  Age: 68 Year
  Sex: Male

DRUGS (9)
  1. IRINOTECAN [Suspect]
     Active Substance: IRINOTECAN
     Indication: OESOPHAGEAL SQUAMOUS CELL CARCINOMA
     Route: 065
  2. FLUOROURACIL. [Suspect]
     Active Substance: FLUOROURACIL
     Indication: OESOPHAGEAL SQUAMOUS CELL CARCINOMA
     Dosage: ON DAY 1; AS PART OF FOLFOX REGIMEN
     Route: 040
  3. FLUOROURACIL. [Suspect]
     Active Substance: FLUOROURACIL
     Dosage: AS PART OF FOLFIRI REGIMEN
     Route: 041
  4. CETUXIMAB. [Suspect]
     Active Substance: CETUXIMAB
     Indication: OESOPHAGEAL SQUAMOUS CELL CARCINOMA
     Route: 065
  5. CETUXIMAB. [Suspect]
     Active Substance: CETUXIMAB
     Indication: RECTAL CANCER STAGE IV
  6. LEUCOVORIN. [Suspect]
     Active Substance: LEUCOVORIN
     Indication: OESOPHAGEAL SQUAMOUS CELL CARCINOMA
     Dosage: AS PART OF FOLFOX REGIMEN
     Route: 041
  7. LEUCOVORIN. [Suspect]
     Active Substance: LEUCOVORIN
     Indication: RECTAL CANCER STAGE IV
     Dosage: AS PART OF FOLFIRI REGIMEN
     Route: 041
  8. IRINOTECAN [Suspect]
     Active Substance: IRINOTECAN
     Indication: RECTAL CANCER STAGE IV
  9. FLUOROURACIL. [Suspect]
     Active Substance: FLUOROURACIL
     Indication: RECTAL CANCER STAGE IV
     Dosage: OVER 2 DAYS; AS PART OF FOLFOX REGIMEN
     Route: 041

REACTIONS (2)
  - Interstitial lung disease [Fatal]
  - Neutropenia [Recovered/Resolved]
